FAERS Safety Report 7296389-9 (Version None)
Quarter: 2011Q1

REPORT INFORMATION
  Report Type: 
  Country: None (occurrence: None)
  Receive Date: 20110211
  Receipt Date: 20110211
  Transmission Date: 20110831
  Serious: Yes (Disabling, Other)
  Sender: FDA-Public Use
  Company Number: None

PATIENT
  Age: 79 Year
  Sex: Female
  Weight: 77.1115 kg

DRUGS (1)
  1. LEVAQUIN [Suspect]
     Indication: SINUSITIS
     Dosage: 500 MG 1 QD X 7 PO
     Route: 048
     Dates: start: 20101004

REACTIONS (3)
  - DYSPNOEA [None]
  - POSTURE ABNORMAL [None]
  - MUSCULAR WEAKNESS [None]
